FAERS Safety Report 10515765 (Version 2)
Quarter: 2014Q4

REPORT INFORMATION
  Report Type: Spontaneous
  Country: DE (occurrence: DE)
  Receive Date: 20141014
  Receipt Date: 20141028
  Transmission Date: 20150528
  Serious: Yes (Other)
  Sender: FDA-Public Use
  Company Number: PHHY2014DE129109

PATIENT
  Age: 73 Year
  Sex: Male
  Weight: 105 kg

DRUGS (1)
  1. DESFERAL [Suspect]
     Active Substance: DEFEROXAMINE MESYLATE
     Indication: PRODUCT USED FOR UNKNOWN INDICATION
     Dosage: UNK
     Route: 058
     Dates: start: 20140905, end: 20140907

REACTIONS (2)
  - Blood creatinine increased [Unknown]
  - Colour blindness acquired [Recovering/Resolving]

NARRATIVE: CASE EVENT DATE: 20140908
